FAERS Safety Report 18991616 (Version 2)
Quarter: 2021Q2

REPORT INFORMATION
  Report Type: Spontaneous
  Country: US (occurrence: US)
  Receive Date: 20210310
  Receipt Date: 20210430
  Transmission Date: 20210717
  Serious: Yes (Disabling, Other)
  Sender: FDA-Public Use
  Company Number: US-PFIZER INC-2021236710

PATIENT
  Age: 53 Year
  Sex: Female
  Weight: 65.77 kg

DRUGS (1)
  1. ESTRING [Suspect]
     Active Substance: ESTRADIOL
     Indication: ATROPHIC VULVOVAGINITIS
     Dosage: UNK

REACTIONS (2)
  - Road traffic accident [Unknown]
  - Spinal fracture [Unknown]

NARRATIVE: CASE EVENT DATE: 202010
